FAERS Safety Report 7557757-0 (Version None)
Quarter: 2011Q2

REPORT INFORMATION
  Report Type: 
  Country: None (occurrence: None)
  Receive Date: 20110620
  Receipt Date: 20110614
  Transmission Date: 20111010
  Serious: Yes (Hospitalization)
  Sender: FDA-Public Use
  Company Number: FR-MERCK-1103FRA00085

PATIENT
  Age: 60 Year
  Sex: Female

DRUGS (4)
  1. NOROXIN [Suspect]
     Route: 048
     Dates: start: 20101201, end: 20101201
  2. LEVOTHYROXINE SODIUM [Concomitant]
     Route: 048
  3. ESTROGENS (UNSPECIFIED) [Concomitant]
     Route: 065
  4. ATORVASTATIN CALCIUM [Concomitant]
     Route: 048

REACTIONS (4)
  - DEPRESSION [None]
  - WEIGHT DECREASED [None]
  - ARTHRALGIA [None]
  - OVERDOSE [None]
